FAERS Safety Report 11802095 (Version 1)
Quarter: 2015Q4

REPORT INFORMATION
  Report Type: Spontaneous
  Country: US (occurrence: US)
  Receive Date: 20151204
  Receipt Date: 20151204
  Transmission Date: 20160305
  Serious: Yes (Other)
  Sender: FDA-Public Use
  Company Number: US-MALLINCKRODT-T201404494

PATIENT
  Age: 55 Year
  Sex: Male
  Weight: 83.9 kg

DRUGS (2)
  1. EXALGO [Suspect]
     Active Substance: HYDROMORPHONE HYDROCHLORIDE
     Dosage: 32 MG, THREE TABLETS QD
     Route: 048
     Dates: start: 20141216
  2. EXALGO [Suspect]
     Active Substance: HYDROMORPHONE HYDROCHLORIDE
     Indication: PAIN
     Dosage: 32 MG, THREE TABLETS QD
     Route: 048
     Dates: start: 20141201, end: 201412

REACTIONS (2)
  - Drug withdrawal syndrome [Not Recovered/Not Resolved]
  - Drug ineffective [Not Recovered/Not Resolved]

NARRATIVE: CASE EVENT DATE: 20141216
